FAERS Safety Report 4457297-1 (Version None)
Quarter: 2004Q3

REPORT INFORMATION
  Report Type: 
  Country: None (occurrence: None)
  Receive Date: 20040921
  Receipt Date: 20040902
  Transmission Date: 20050211
  Serious: Yes (Other)
  Sender: FDA-Public Use
  Company Number: B0344615A

PATIENT
  Age: 62 Year
  Sex: Male

DRUGS (1)
  1. COREG [Suspect]
     Indication: CARDIOMYOPATHY
     Dosage: 25 MG/TWICE PER DAY/ORAL
     Route: 048
     Dates: start: 20030815

REACTIONS (2)
  - ANAEMIA [None]
  - GASTRIC ULCER HAEMORRHAGE [None]
